FAERS Safety Report 7797361-2 (Version None)
Quarter: 2011Q4

REPORT INFORMATION
  Report Type: 
  Country: None (occurrence: None)
  Receive Date: 20111005
  Receipt Date: 20110926
  Transmission Date: 20120403
  Serious: Yes (Hospitalization, Other)
  Sender: FDA-Public Use
  Company Number: US-RB-031717-11

PATIENT
  Sex: Female

DRUGS (8)
  1. SYMBICORT [Concomitant]
     Dosage: DAILY
  2. SYMBICORT [Concomitant]
     Indication: BRONCHITIS
     Dosage: DAILY
  3. SYMBICORT [Concomitant]
     Indication: CHRONIC OBSTRUCTIVE PULMONARY DISEASE
     Dosage: DAILY
  4. COMBIVENT [Concomitant]
     Indication: CHRONIC OBSTRUCTIVE PULMONARY DISEASE
     Dosage: TWO PUFFS AS NEEDED DAILY
  5. COMBIVENT [Concomitant]
     Indication: BRONCHITIS
     Dosage: TWO PUFFS AS NEEDED DAILY
  6. SUBOXONE [Suspect]
     Indication: DRUG DEPENDENCE
     Dosage: 12 MG DAILY
     Route: 060
     Dates: start: 20110701
  7. COMBIVENT [Concomitant]
     Dosage: TWO PUFFS AS NEEDED DAILY
  8. CYMBALTA [Suspect]
     Indication: PRODUCT USED FOR UNKNOWN INDICATION
     Dosage: UNKNOWN DOSE
     Route: 048
     Dates: start: 20110801, end: 20110801

REACTIONS (3)
  - LOSS OF CONSCIOUSNESS [None]
  - WRONG TECHNIQUE IN DRUG USAGE PROCESS [None]
  - COUGH [None]
